APPROVED DRUG PRODUCT: FLUPHENAZINE HYDROCHLORIDE
Active Ingredient: FLUPHENAZINE HYDROCHLORIDE
Strength: 1MG
Dosage Form/Route: TABLET;ORAL
Application: A089743 | Product #002 | TE Code: AB
Applicant: LANNETT CO INC
Approved: Aug 25, 1988 | RLD: No | RS: No | Type: RX